FAERS Safety Report 7833928-0 (Version None)
Quarter: 2011Q4

REPORT INFORMATION
  Report Type: 
  Country: None (occurrence: None)
  Receive Date: 20111020
  Receipt Date: 20111012
  Transmission Date: 20120403
  Serious: Yes (Congenital Anomaly)
  Sender: FDA-Public Use
  Company Number: 2011MA015052

PATIENT
  Sex: Female

DRUGS (5)
  1. CHLORPROMAZINE HYDROCHLORIDE [Suspect]
     Indication: MATERNAL EXPOSURE DURING PREGNANCY
     Dosage: 50 MG; TRPL
     Route: 064
     Dates: start: 20101005
  2. FLUOXETINE [Suspect]
     Indication: MATERNAL EXPOSURE DURING PREGNANCY
     Dosage: 40 MG; TRPL
     Route: 064
     Dates: start: 20110117
  3. PAROXETINE HCL [Concomitant]
  4. OMEPRAZOLE [Concomitant]
  5. CYCLIZINE [Concomitant]

REACTIONS (2)
  - CLEFT PALATE [None]
  - MATERNAL DRUGS AFFECTING FOETUS [None]
